FAERS Safety Report 7757929-6 (Version None)
Quarter: 2011Q3

REPORT INFORMATION
  Report Type: 
  Country: None (occurrence: None)
  Receive Date: 20110919
  Receipt Date: 20110914
  Transmission Date: 20111222
  Serious: Yes (Hospitalization)
  Sender: FDA-Public Use
  Company Number: US-BRISTOL-MYERS SQUIBB COMPANY-16059024

PATIENT
  Age: 68 Year
  Sex: Male
  Weight: 95 kg

DRUGS (3)
  1. ERBITUX [Suspect]
     Indication: NON-SMALL CELL LUNG CANCER
     Dates: start: 20110726
  2. CARBOPLATIN [Suspect]
     Indication: NON-SMALL CELL LUNG CANCER
     Dates: start: 20110712
  3. TAXOL [Suspect]
     Indication: NON-SMALL CELL LUNG CANCER
     Dates: start: 20110712

REACTIONS (2)
  - HYPOXIA [None]
  - DYSPNOEA [None]
